FAERS Safety Report 8179256-8 (Version None)
Quarter: 2012Q1

REPORT INFORMATION
  Report Type: 
  Country: None (occurrence: None)
  Receive Date: 20120302
  Receipt Date: 20120224
  Transmission Date: 20120608
  Serious: Yes (Hospitalization)
  Sender: FDA-Public Use
  Company Number: US-AMGEN-USASP2011004984

PATIENT
  Age: 68 Year
  Sex: Female

DRUGS (1)
  1. PROLIA [Suspect]
     Indication: OSTEOPOROSIS POSTMENOPAUSAL
     Dates: start: 20100923

REACTIONS (5)
  - ABDOMINAL PAIN UPPER [None]
  - HUNGER [None]
  - MICTURITION URGENCY [None]
  - DIZZINESS [None]
  - ASTHENIA [None]
